FAERS Safety Report 8688118 (Version 4)
Quarter: 2013Q4

REPORT INFORMATION
  Report Type: Spontaneous
  Country: US (occurrence: US)
  Receive Date: 20120727
  Receipt Date: 20131101
  Transmission Date: 20140711
  Serious: Yes (Hospitalization, Other)
  Sender: FDA-Public Use
  Company Number: US-009507513-2012SP000189

PATIENT
  Age: 22 Year
  Sex: Female
  Weight: 68.4 kg

DRUGS (1)
  1. NUVARING [Suspect]
     Indication: CONTRACEPTION
     Dosage: UNK
     Route: 067
     Dates: start: 200706, end: 20090106

REACTIONS (11)
  - Deep vein thrombosis [Unknown]
  - Pulmonary embolism [Unknown]
  - Bronchitis [Unknown]
  - Muscle strain [Unknown]
  - Cystitis [Unknown]
  - Nephrolithiasis [Not Recovered/Not Resolved]
  - Haematuria [Not Recovered/Not Resolved]
  - Cardiac murmur functional [Unknown]
  - Intra-uterine contraceptive device insertion [Recovered/Resolved]
  - Food poisoning [Unknown]
  - Cystitis [Unknown]
